FAERS Safety Report 13622523 (Version 1)
Quarter: 2017Q2

REPORT INFORMATION
  Report Type: Spontaneous
  Country: DE (occurrence: DE)
  Receive Date: 20170607
  Receipt Date: 20170607
  Transmission Date: 20170830
  Serious: Yes (Hospitalization)
  Sender: FDA-Public Use
  Company Number: DE-TEVA-773541GER

PATIENT
  Age: 48 Year
  Sex: Female

DRUGS (15)
  1. CLOZAPIN [Suspect]
     Active Substance: CLOZAPINE
     Dosage: 25 - 400MG
     Route: 048
     Dates: start: 20160825, end: 20160922
  2. PANTOZOL [Concomitant]
     Active Substance: PANTOPRAZOLE SODIUM
     Route: 048
     Dates: start: 20160922
  3. CLOZAPIN [Suspect]
     Active Substance: CLOZAPINE
     Route: 048
     Dates: start: 20161130, end: 20161201
  4. CLOZAPIN [Suspect]
     Active Substance: CLOZAPINE
     Route: 048
     Dates: start: 20161204
  5. CLOZAPIN [Suspect]
     Active Substance: CLOZAPINE
     Route: 048
     Dates: start: 20161205, end: 20161206
  6. SAROTEN RETARD [Suspect]
     Active Substance: AMITRIPTYLINE
     Route: 048
     Dates: start: 20161109
  7. CLOZAPIN [Suspect]
     Active Substance: CLOZAPINE
     Route: 048
     Dates: start: 20160923, end: 20160930
  8. CLOZAPIN [Suspect]
     Active Substance: CLOZAPINE
     Route: 048
     Dates: start: 20161001, end: 20161129
  9. SAROTEN [Suspect]
     Active Substance: AMITRIPTYLINE
     Route: 048
     Dates: start: 20161028, end: 20161103
  10. SAROTEN [Suspect]
     Active Substance: AMITRIPTYLINE
     Route: 048
     Dates: start: 20161104, end: 20161108
  11. CLOZAPIN [Suspect]
     Active Substance: CLOZAPINE
     Route: 048
     Dates: start: 20161204
  12. CLOZAPIN [Suspect]
     Active Substance: CLOZAPINE
     Route: 048
     Dates: start: 20161203
  13. SERTRALINE [Suspect]
     Active Substance: SERTRALINE HYDROCHLORIDE
     Route: 048
     Dates: start: 20161028, end: 20161030
  14. SERTRALINE [Suspect]
     Active Substance: SERTRALINE HYDROCHLORIDE
     Route: 048
     Dates: start: 20161031, end: 20161111
  15. SAROTEN [Suspect]
     Active Substance: AMITRIPTYLINE
     Route: 048
     Dates: start: 20161020, end: 20161027

REACTIONS (3)
  - Dysphemia [Recovered/Resolved]
  - Myoclonus [Recovered/Resolved]
  - Salivary hypersecretion [Recovered/Resolved]

NARRATIVE: CASE EVENT DATE: 20160922
